FAERS Safety Report 20763657 (Version 3)
Quarter: 2022Q3

REPORT INFORMATION
  Report Type: Report from Study
  Country: US (occurrence: US)
  Receive Date: 20220428
  Receipt Date: 20220715
  Transmission Date: 20221027
  Serious: No
  Sender: FDA-Public Use
  Company Number: US-NOVARTISTESTPH-NVSC2022US098486

PATIENT
  Sex: Female

DRUGS (1)
  1. COSENTYX [Suspect]
     Active Substance: SECUKINUMAB
     Indication: Psoriatic arthropathy
     Dosage: UNK UNK, QMO (Q28 DAYS)
     Route: 058

REACTIONS (5)
  - Oropharyngeal pain [Unknown]
  - Nasal dryness [Unknown]
  - Paraesthesia oral [Unknown]
  - Paranasal sinus hyposecretion [Unknown]
  - Hypersensitivity [Unknown]
